APPROVED DRUG PRODUCT: LIOTHYRONINE SODIUM
Active Ingredient: LIOTHYRONINE SODIUM
Strength: EQ 0.025MG BASE
Dosage Form/Route: TABLET;ORAL
Application: A090326 | Product #002
Applicant: PHARMOBEDIENT CONSULTING LLC
Approved: Jul 14, 2009 | RLD: No | RS: No | Type: DISCN